FAERS Safety Report 5914530-4 (Version None)
Quarter: 2008Q4

REPORT INFORMATION
  Report Type: 
  Country: None (occurrence: None)
  Receive Date: 20081008
  Receipt Date: 20080923
  Transmission Date: 20090506
  Serious: Yes (Other)
  Sender: FDA-Public Use
  Company Number: 8037553

PATIENT
  Age: 60 Year
  Sex: Male

DRUGS (2)
  1. KEPPRA [Suspect]
     Dosage: 500 MG 2/D
  2. LAMICTAL [Concomitant]

REACTIONS (1)
  - BLOOD PRESSURE INCREASED [None]
